FAERS Safety Report 8593669-1 (Version None)
Quarter: 2012Q3

REPORT INFORMATION
  Report Type: 
  Country: None (occurrence: None)
  Receive Date: 20120814
  Receipt Date: 20120808
  Transmission Date: 20120928
  Serious: Yes (Other)
  Sender: FDA-Public Use
  Company Number: JP-VERTEX PHARMACEUTICALS INC.-AE-2012-009814

PATIENT
  Age: 64 Year
  Sex: Male

DRUGS (11)
  1. TELAVIC [Suspect]
     Route: 048
     Dates: start: 20120508, end: 20120726
  2. REBETOL [Concomitant]
     Route: 048
     Dates: start: 20120526, end: 20120614
  3. RESTAMIN [Concomitant]
     Route: 061
     Dates: start: 20120423
  4. SELBEX [Concomitant]
     Route: 048
     Dates: start: 20120515
  5. PEG-INTRON [Concomitant]
     Route: 058
     Dates: start: 20120508
  6. REBETOL [Concomitant]
     Route: 048
     Dates: start: 20120508, end: 20120525
  7. LOXONIN [Concomitant]
     Route: 048
     Dates: start: 20120515
  8. REBETOL [Concomitant]
     Route: 048
     Dates: start: 20120615
  9. TELAVIC [Suspect]
     Indication: HEPATITIS C
     Route: 048
     Dates: start: 20120420, end: 20120423
  10. REBETOL [Concomitant]
     Indication: HEPATITIS C
     Route: 048
     Dates: start: 20120420, end: 20120423
  11. PEG-INTRON [Concomitant]
     Indication: HEPATITIS C
     Route: 058
     Dates: start: 20120420, end: 20120423

REACTIONS (2)
  - RENAL IMPAIRMENT [None]
  - PRURITUS [None]
